FAERS Safety Report 8207768-7 (Version None)
Quarter: 2012Q1

REPORT INFORMATION
  Report Type: 
  Country: None (occurrence: None)
  Receive Date: 20120313
  Receipt Date: 20120313
  Transmission Date: 20120608
  Serious: Yes (Hospitalization)
  Sender: FDA-Public Use
  Company Number: None

PATIENT
  Sex: Female
  Weight: 53.6 kg

DRUGS (6)
  1. METHOTREXATE [Suspect]
     Dosage: 30 MG
  2. PEG-L- ASPARAGINASE (K-H) [Suspect]
     Dosage: 3625 K
  3. MERCAPTOPURINE [Suspect]
     Dosage: 2500 MG
  4. CYTARABINE [Suspect]
     Dosage: 216 MG
  5. CYCLOPHOSPHAMIDE [Suspect]
     Dosage: 2900 MG
  6. VINCRISTINE SULFATE [Suspect]
     Dosage: 4 MG

REACTIONS (11)
  - HEPATIC STEATOSIS [None]
  - CHOLELITHIASIS [None]
  - MALLORY-WEISS SYNDROME [None]
  - PLATELET COUNT DECREASED [None]
  - MENTAL STATUS CHANGES [None]
  - AMMONIA INCREASED [None]
  - DYSPNOEA [None]
  - BACTERAEMIA [None]
  - SEPSIS [None]
  - ENTEROCOLITIS [None]
  - TACHYCARDIA [None]
